FAERS Safety Report 6118648-5 (Version None)
Quarter: 2009Q1

REPORT INFORMATION
  Report Type: 
  Country: None (occurrence: None)
  Receive Date: 20090314
  Receipt Date: 20090226
  Transmission Date: 20090719
  Serious: No
  Sender: FDA-Public Use
  Company Number: US-ABBOTT-09P-163-0559343-00

PATIENT
  Sex: Male
  Weight: 120.31 kg

DRUGS (1)
  1. HUMIRA [Suspect]
     Indication: PSORIASIS
     Dates: start: 20080201

REACTIONS (10)
  - ACNE [None]
  - ARTHRALGIA [None]
  - GROIN INFECTION [None]
  - IMPAIRED HEALING [None]
  - LOCALISED INFECTION [None]
  - PAIN IN EXTREMITY [None]
  - PSORIASIS [None]
  - SKIN LACERATION [None]
  - TENDERNESS [None]
  - TESTICULAR PAIN [None]
